FAERS Safety Report 6331353-5 (Version None)
Quarter: 2009Q3

REPORT INFORMATION
  Report Type: 
  Country: None (occurrence: None)
  Receive Date: 20090827
  Receipt Date: 20090814
  Transmission Date: 20100115
  Serious: Yes (Hospitalization, Other)
  Sender: FDA-Public Use
  Company Number: US-ELI_LILLY_AND_COMPANY-US200908003442

PATIENT
  Age: 65 Year
  Sex: Male

DRUGS (18)
  1. CYMBALTA [Suspect]
     Indication: PAIN
     Dosage: 60 MG, UNK
     Dates: start: 20070101
  2. CRESTOR [Concomitant]
  3. DIGOXIN [Concomitant]
  4. ASPIRIN [Concomitant]
  5. AVIDART [Concomitant]
  6. DILTIAZEM [Concomitant]
  7. LASIX [Concomitant]
  8. MORPHINE [Concomitant]
  9. TRICOR [Concomitant]
  10. ZANTAC [Concomitant]
  11. LYRICA [Concomitant]
  12. TOPROL-XL [Concomitant]
  13. ISOSORBIDE DINITRATE [Concomitant]
  14. LOTREL [Concomitant]
  15. SKELAXIN [Concomitant]
  16. SEROQUEL [Concomitant]
  17. PROTONIX [Concomitant]
  18. MULTIVITAMIN /00831701/ [Concomitant]

REACTIONS (4)
  - MENTAL STATUS CHANGES [None]
  - OFF LABEL USE [None]
  - RENAL FAILURE [None]
  - RESPIRATORY FAILURE [None]
